FAERS Safety Report 26034392 (Version 1)
Quarter: 2025Q4

REPORT INFORMATION
  Report Type: Spontaneous
  Country: US (occurrence: US)
  Receive Date: 20251112
  Receipt Date: 20251112
  Transmission Date: 20260117
  Serious: Yes (Hospitalization)
  Sender: PROCTER AND GAMBLE
  Company Number: US-MLMSERVICE-20251030-PI691376-00029-2

PATIENT
  Age: 5 Year

DRUGS (1)
  1. ACETAMINOPHEN [Suspect]
     Active Substance: ACETAMINOPHEN
     Dosage: 1 ONLY, UNKNOWN QUANTITY OF ADULT-FORMULATION ACETAMINOPHEN, OF UNSPECIFIED STRENGTH

REACTIONS (4)
  - Gastrointestinal disorder [Recovered/Resolved]
  - Accidental overdose [Unknown]
  - Accidental exposure to product by child [Unknown]
  - Exposure via ingestion [Unknown]
